FAERS Safety Report 15296649 (Version 1)
Quarter: 2018Q3

REPORT INFORMATION
  Report Type: Spontaneous
  Country: AU (occurrence: AU)
  Receive Date: 20180820
  Receipt Date: 20180820
  Transmission Date: 20181010
  Serious: Yes (Other)
  Sender: FDA-Public Use
  Company Number: AU-SAKK-2018SA205487AA

PATIENT
  Age: 83 Year
  Sex: Female

DRUGS (1)
  1. ENOXAPARIN SODIUM. [Suspect]
     Active Substance: ENOXAPARIN SODIUM
     Indication: PULMONARY EMBOLISM
     Dosage: UNK

REACTIONS (2)
  - Ureteric obstruction [Recovered/Resolved]
  - Abdominal wall haematoma [Recovered/Resolved]
